FAERS Safety Report 4838158-2 (Version None)
Quarter: 2005Q4

REPORT INFORMATION
  Report Type: 
  Country: None (occurrence: None)
  Receive Date: 20051123
  Receipt Date: 20051123
  Transmission Date: 20060501
  Serious: Yes (Hospitalization)
  Sender: FDA-Public Use
  Company Number: None

PATIENT
  Sex: Male

DRUGS (4)
  1. DILTIAZEM [Suspect]
     Indication: ATRIAL FIBRILLATION
     Dosage: 240 MG PO Q24
     Route: 048
     Dates: start: 20050805
  2. DILTIAZEM [Suspect]
     Indication: HYPERTENSION
     Dosage: 240 MG PO Q24
     Route: 048
     Dates: start: 20050805
  3. PROPRANOLOL [Concomitant]
  4. WARFARIN [Concomitant]

REACTIONS (7)
  - ASTHENIA [None]
  - BRADYCARDIA [None]
  - DIZZINESS [None]
  - FALL [None]
  - LOWER LIMB FRACTURE [None]
  - SIMILAR REACTION ON PREVIOUS EXPOSURE TO DRUG [None]
  - SYNCOPE [None]
